FAERS Safety Report 8071842 (Version 7)
Quarter: 2013Q2

REPORT INFORMATION
  Report Type: Report from Study
  Country: FR (occurrence: FR)
  Receive Date: 20110805
  Receipt Date: 20130507
  Transmission Date: 20140414
  Serious: Yes (Hospitalization, Other)
  Sender: FDA-Public Use
  Company Number: PHHO2011FR13105

PATIENT
  Sex: Male
  Weight: 97 kg

DRUGS (19)
  1. NEORAL [Suspect]
     Indication: RENAL TRANSPLANT
     Dosage: 170 MG, QD
     Route: 002
     Dates: start: 20110705
  2. NEORAL [Suspect]
     Dosage: 170 MG, QD
     Route: 002
     Dates: start: 20110716
  3. NEORAL [Suspect]
     Dosage: 450 MG, UNK
     Route: 002
     Dates: start: 20110722, end: 20110722
  4. NEORAL [Suspect]
     Dosage: 400 MG, UNK
     Route: 002
     Dates: start: 20110723
  5. SIMULECT [Concomitant]
     Indication: RENAL TRANSPLANT
     Dosage: UNK
  6. CELLCEPT [Concomitant]
     Indication: TRANSPLANT REJECTION
     Dosage: 1.5 G, QD
     Route: 002
     Dates: start: 20110705
  7. CELLCEPT [Concomitant]
     Dosage: 1.5 G, QD
     Route: 002
     Dates: start: 20110710
  8. SOLU-MEDROL [Concomitant]
     Indication: RENAL TRANSPLANT
     Dosage: 5 MG, UNK
     Route: 042
     Dates: start: 20110713
  9. SOLUPRED [Concomitant]
     Indication: RENAL TRANSPLANT
     Dosage: 5 MG, QD
     Route: 002
     Dates: start: 20110713
  10. LASILIX [Concomitant]
     Dosage: 125 MG, UNK
     Route: 048
     Dates: start: 20110723, end: 20110723
  11. LASILIX [Concomitant]
     Dosage: 40 MG, UNK
     Route: 048
     Dates: start: 20110726
  12. KARDEGIC [Concomitant]
     Dosage: 75 MG, UNK
     Route: 048
     Dates: start: 20110706, end: 20110721
  13. EPREX [Concomitant]
     Dosage: 10000 IU, UNK
     Dates: start: 20110711
  14. ROVALCYTE [Concomitant]
  15. TAHOR [Concomitant]
     Dosage: 10 MG, UNK
     Route: 048
     Dates: start: 20110709
  16. XATRAL [Concomitant]
     Dosage: 10 MG, UNK
     Dates: start: 20110718
  17. ATENOLOL [Concomitant]
     Dosage: 25 MG, UNK
     Route: 048
     Dates: start: 20110708
  18. PREDNISOLONE [Concomitant]
     Indication: TRANSPLANT REJECTION
     Dosage: 20 MG, UNK
     Dates: start: 20110713
  19. ESOMEPRAZOLE [Concomitant]

REACTIONS (7)
  - Acute prerenal failure [Recovered/Resolved]
  - Disease progression [Recovered/Resolved]
  - Renal failure acute [Recovered/Resolved]
  - Ureteric stenosis [Recovered/Resolved]
  - Hydronephrosis [Recovered/Resolved]
  - Pneumonia aspiration [Recovered/Resolved]
  - Anaemia [Recovering/Resolving]
